FAERS Safety Report 12048334 (Version 1)
Quarter: 2016Q1

REPORT INFORMATION
  Report Type: Spontaneous
  Country: US (occurrence: None)
  Receive Date: 20160208
  Receipt Date: 20160208
  Transmission Date: 20160526
  Serious: No
  Sender: FDA-Public Use
  Company Number: None

PATIENT
  Age: 72 Year
  Sex: Female

DRUGS (21)
  1. LISINOPRIL. [Concomitant]
     Active Substance: LISINOPRIL
  2. LATANOPROST EYE DROPS [Concomitant]
     Active Substance: LATANOPROST
  3. REFRESH EYE DROPS (MINERAL OIL\PETROLATUM) [Concomitant]
     Active Substance: MINERAL OIL\PETROLATUM
  4. TUMS [Concomitant]
     Active Substance: CALCIUM CARBONATE
  5. PRILOSEC [Concomitant]
     Active Substance: OMEPRAZOLE MAGNESIUM
  6. PERCOCET [Concomitant]
     Active Substance: ACETAMINOPHEN\OXYCODONE HYDROCHLORIDE
  7. ASPIRIN. [Concomitant]
     Active Substance: ASPIRIN
  8. PERI COLACE [Concomitant]
  9. SENNA [Concomitant]
     Active Substance: SENNA LEAF\SENNOSIDES\SENNOSIDES A AND B
  10. WELLBUTRIN XL [Concomitant]
     Active Substance: BUPROPION HYDROCHLORIDE
  11. VITAMIN B COMPLEX WITH C [Concomitant]
     Active Substance: ASCORBIC ACID\CALCIUM PANTOTHENATE\CYANOCOBALAMIN\NIACINAMIDE\PYRIDOXINE HYDROCHLORIDE\RIBOFLAVIN\THIAMINE MONONITRATE
  12. WHEELED WALKER [Concomitant]
  13. VITAMIN D [Concomitant]
     Active Substance: CHOLECALCIFEROL
  14. LOPRESSOR [Concomitant]
     Active Substance: METOPROLOL TARTRATE
  15. SERTRALINE HCL [Suspect]
     Active Substance: SERTRALINE HYDROCHLORIDE
     Indication: DEPRESSION
     Dosage: 25 MG FOR 2 WEEKS TWICE USED  FOR 4-5 WEEKS?
     Route: 048
     Dates: start: 20151103, end: 20151215
  16. PLAVIX [Concomitant]
     Active Substance: CLOPIDOGREL BISULFATE
  17. NYSTATIN. [Concomitant]
     Active Substance: NYSTATIN
  18. CANE [Concomitant]
  19. ZYRTEC [Concomitant]
     Active Substance: CETIRIZINE HYDROCHLORIDE
  20. MULTIVIT WITH MINERALS [Concomitant]
  21. MOM [Concomitant]
     Active Substance: MAGNESIUM HYDROXIDE

REACTIONS (9)
  - Condition aggravated [None]
  - Obsessive-compulsive disorder [None]
  - Drug interaction [None]
  - Pain [None]
  - Insomnia [None]
  - Hallucinations, mixed [None]
  - Mania [None]
  - Amnesia [None]
  - Protrusion tongue [None]

NARRATIVE: CASE EVENT DATE: 20151125
